FAERS Safety Report 17120885 (Version 1)
Quarter: 2019Q4

REPORT INFORMATION
  Report Type: Spontaneous
  Country: US (occurrence: US)
  Receive Date: 20191113
  Receipt Date: 20191113
  Transmission Date: 20200122
  Serious: Yes (Hospitalization)
  Sender: FDA-Public Use
  Company Number: None

PATIENT
  Age: 69 Year
  Sex: Male

DRUGS (1)
  1. IBUPROFEN. [Suspect]
     Active Substance: IBUPROFEN
     Indication: PAIN
     Dates: start: 20190607, end: 20191030

REACTIONS (6)
  - Gait disturbance [None]
  - Proteinuria [None]
  - Glomerulonephritis minimal lesion [None]
  - Focal segmental glomerulosclerosis [None]
  - Scrotal oedema [None]
  - Nephrotic syndrome [None]

NARRATIVE: CASE EVENT DATE: 20191029
